FAERS Safety Report 16661335 (Version 1)
Quarter: 2019Q3

REPORT INFORMATION
  Report Type: Spontaneous
  Country: PR (occurrence: PR)
  Receive Date: 20190802
  Receipt Date: 20190802
  Transmission Date: 20191004
  Serious: No
  Sender: FDA-Public Use
  Company Number: PR-PFIZER INC-2019329606

PATIENT
  Age: 78 Year
  Sex: Female
  Weight: 78.47 kg

DRUGS (1)
  1. IBRANCE [Suspect]
     Active Substance: PALBOCICLIB
     Indication: BREAST CANCER FEMALE
     Dosage: 75 MG, CYCLIC (1 DAILY ON 21 DAYS AND 7 DAYS OFF)
     Route: 048
     Dates: start: 20180612

REACTIONS (2)
  - Weight decreased [Unknown]
  - Rash generalised [Unknown]

NARRATIVE: CASE EVENT DATE: 20190729
